FAERS Safety Report 9385195 (Version 1)
Quarter: 2013Q2

REPORT INFORMATION
  Report Type: Spontaneous
  Country: US (occurrence: None)
  Receive Date: 20130628
  Receipt Date: 20130628
  Transmission Date: 20140414
  Serious: Yes (Other)
  Sender: FDA-Public Use
  Company Number: 2013P1009234

PATIENT
  Age: 41 Year
  Sex: Female

DRUGS (2)
  1. INFUMORPH [Suspect]
     Indication: PAIN
     Route: 037
  2. INFUMORPH [Suspect]
     Indication: BACK PAIN
     Route: 037

REACTIONS (5)
  - Twiddler^s syndrome [None]
  - Device computer issue [None]
  - Incorrect dose administered by device [None]
  - Drug effect incomplete [None]
  - Medical device complication [None]
